FAERS Safety Report 24177635 (Version 2)
Quarter: 2024Q3

REPORT INFORMATION
  Report Type: Report from Study
  Country: IQ (occurrence: IQ)
  Receive Date: 20240806
  Receipt Date: 20240812
  Transmission Date: 20241017
  Serious: Yes (Other)
  Sender: REGENERON
  Company Number: IQ-BAYER-2024A112190

PATIENT
  Age: 69 Year
  Sex: Male

DRUGS (4)
  1. EYLEA [Suspect]
     Active Substance: AFLIBERCEPT
     Indication: Diabetic retinal oedema
     Dosage: UNK UNK, Q2MON (BOTH EYES), SOL. FOR INJEC., 40MG/ML
     Dates: start: 202311
  2. EYLEA [Suspect]
     Active Substance: AFLIBERCEPT
     Dosage: UNK, 40 MG/ML, SOLUTION FOR INJECTION
  3. EYLEA [Suspect]
     Active Substance: AFLIBERCEPT
     Dosage: UNK, 40 MG/ML, SOLUTION FOR INJECTION
  4. EYLEA [Suspect]
     Active Substance: AFLIBERCEPT
     Dosage: 4TH DOSE IN LEFT EYE, 40 MG/ML, SOLUTION FOR INJECTION
     Dates: start: 20240731, end: 20240731

REACTIONS (3)
  - Retinal haemorrhage [Not Recovered/Not Resolved]
  - Vision blurred [Not Recovered/Not Resolved]
  - Drug ineffective [Unknown]

NARRATIVE: CASE EVENT DATE: 20240731
